FAERS Safety Report 23727200 (Version 1)
Quarter: 2024Q2

REPORT INFORMATION
  Report Type: Spontaneous
  Country: BR (occurrence: BR)
  Receive Date: 20240410
  Receipt Date: 20240410
  Transmission Date: 20240715
  Serious: Yes (Other)
  Sender: FDA-Public Use
  Company Number: BR-NALPROPION PHARMACEUTICALS INC.-BR-2024CUR001690

PATIENT
  Age: 62 Year

DRUGS (1)
  1. CONTRAVE [Suspect]
     Active Substance: BUPROPION HYDROCHLORIDE\NALTREXONE HYDROCHLORIDE
     Indication: Product used for unknown indication
     Dosage: 1.0 DOSAGE FORM (1 DOSAGE FORM, 1 IN 1 DAY)
     Route: 065

REACTIONS (2)
  - Foreign body in throat [Unknown]
  - Product use complaint [Unknown]
